FAERS Safety Report 20602736 (Version 1)
Quarter: 2022Q1

REPORT INFORMATION
  Report Type: Report from Study
  Country: CA (occurrence: CA)
  Receive Date: 20220316
  Receipt Date: 20220316
  Transmission Date: 20220423
  Serious: Yes (Death, Hospitalization)
  Sender: FDA-Public Use
  Company Number: CA-PFIZER INC-202200371122

PATIENT
  Age: 67 Year
  Sex: Male

DRUGS (3)
  1. HYDROMORPHONE HYDROCHLORIDE [Suspect]
     Active Substance: HYDROMORPHONE HYDROCHLORIDE
     Dosage: 0.5 ML, 1 EVERY 4 HOURS
     Route: 065
  2. HALOPERIDOL DECANOATE [Suspect]
     Active Substance: HALOPERIDOL DECANOATE
     Dosage: 1 ML
     Route: 065
  3. SANDOSTATIN [Suspect]
     Active Substance: OCTREOTIDE ACETATE
     Indication: Carcinoid tumour
     Dosage: 30 MG, MONTHLY
     Route: 030

REACTIONS (11)
  - Death [Fatal]
  - Body temperature increased [Unknown]
  - Carcinoid tumour [Unknown]
  - Depressed mood [Unknown]
  - Dizziness [Unknown]
  - Feeling abnormal [Unknown]
  - Intestinal obstruction [Unknown]
  - Malignant neoplasm progression [Unknown]
  - Nausea [Unknown]
  - Oesophageal ulcer [Unknown]
  - Pallor [Unknown]
